FAERS Safety Report 6233200-9 (Version None)
Quarter: 2009Q2

REPORT INFORMATION
  Report Type: 
  Country: None (occurrence: None)
  Receive Date: 20090617
  Receipt Date: 20090608
  Transmission Date: 20091009
  Serious: Yes (Hospitalization)
  Sender: FDA-Public Use
  Company Number: PHHY2008MX31024

PATIENT
  Age: 78 Year
  Sex: Female

DRUGS (3)
  1. ACLASTA [Suspect]
     Indication: OSTEOPOROSIS
     Dosage: 5 MG/ 100 ML
     Dates: start: 20070701
  2. ACLASTA [Suspect]
     Dosage: 5 MG/ 100 ML
     Dates: start: 20080101
  3. ACLASTA [Suspect]
     Dosage: 5 MG/ 100 ML
     Dates: start: 20090301

REACTIONS (6)
  - FALL [None]
  - HIP ARTHROPLASTY [None]
  - HIP FRACTURE [None]
  - LUMBAR VERTEBRAL FRACTURE [None]
  - SURGERY [None]
  - UPPER LIMB FRACTURE [None]
